FAERS Safety Report 9009358 (Version 4)
Quarter: 2013Q2

REPORT INFORMATION
  Report Type: Spontaneous
  Country: EC (occurrence: EC)
  Receive Date: 20130111
  Receipt Date: 20130417
  Transmission Date: 20140414
  Serious: Yes (Hospitalization, Other)
  Sender: FDA-Public Use
  Company Number: EC-MPIJNJ-2013-00146

PATIENT
  Sex: 0

DRUGS (6)
  1. VELCADE [Suspect]
     Indication: PLASMA CELL MYELOMA
     Dosage: 1.3 MG/M2, CYCLIC
     Route: 042
     Dates: start: 20121129
  2. VELCADE [Suspect]
     Dosage: 2.18 MG, UNK
     Route: 058
  3. GABAPENTIN [Concomitant]
  4. CYCLOPHOSPHAMIDE [Concomitant]
     Dosage: 300 MG/M2, UNK
  5. DEXAMETHASONE [Concomitant]
  6. WARFARIN [Concomitant]
     Indication: DEEP VEIN THROMBOSIS

REACTIONS (6)
  - Dyskinesia [Unknown]
  - Pneumonia [Recovered/Resolved]
  - Body temperature increased [Unknown]
  - Urinary tract infection [Unknown]
  - Off label use [Unknown]
  - Drug ineffective [Unknown]
